FAERS Safety Report 21297963 (Version 1)
Quarter: 2022Q3

REPORT INFORMATION
  Report Type: Spontaneous
  Country: US (occurrence: None)
  Receive Date: 20220905
  Receipt Date: 20220905
  Transmission Date: 20221026
  Serious: No
  Sender: FDA-Public Use
  Company Number: None

PATIENT
  Age: 65 Year
  Sex: Female
  Weight: 133.81 kg

DRUGS (14)
  1. ASMANEX [Suspect]
     Active Substance: MOMETASONE FUROATE
  2. WARFARIN [Concomitant]
     Active Substance: WARFARIN
  3. SYNTHROID [Concomitant]
     Active Substance: LEVOTHYROXINE SODIUM
  4. ASMANEX [Concomitant]
     Active Substance: MOMETASONE FUROATE
  5. BUPROPION [Concomitant]
     Active Substance: BUPROPION
  6. ESCITALOPRAM [Concomitant]
     Active Substance: ESCITALOPRAM OXALATE
  7. VERAPAMIL [Concomitant]
     Active Substance: VERAPAMIL HYDROCHLORIDE
  8. ALBUTEROL [Concomitant]
     Active Substance: ALBUTEROL
  9. FLONASE [Concomitant]
     Active Substance: FLUTICASONE PROPIONATE
  10. CLARITIN [Concomitant]
     Active Substance: LORATADINE
  11. VITAMINS [Concomitant]
     Active Substance: VITAMINS
  12. VITAMIN B [Concomitant]
     Active Substance: VITAMIN B
  13. VITAMIN D [Concomitant]
     Active Substance: VITAMIN D NOS
  14. CALCIUM [Concomitant]
     Active Substance: CALCIUM

REACTIONS (2)
  - Dyspnoea [None]
  - Dose calculation error [None]

NARRATIVE: CASE EVENT DATE: 20220904
